FAERS Safety Report 11209248 (Version 1)
Quarter: 2015Q2

REPORT INFORMATION
  Report Type: Report from Study
  Country: US (occurrence: US)
  Receive Date: 20150622
  Receipt Date: 20150622
  Transmission Date: 20150821
  Serious: Yes (Hospitalization, Disabling)
  Sender: FDA-Public Use
  Company Number: PHEH2014US023489

PATIENT
  Age: 62 Year
  Sex: Female
  Weight: 113 kg

DRUGS (18)
  1. EXTAVIA [Suspect]
     Active Substance: INTERFERON BETA-1B
     Dosage: UNK
     Route: 058
     Dates: start: 20141120
  2. EXTAVIA [Suspect]
     Active Substance: INTERFERON BETA-1B
     Dosage: 0.187 MG,(0.75ML) QOD (WEEKS 5 TO 6)
     Route: 058
  3. LISINOPRIL. [Concomitant]
     Active Substance: LISINOPRIL
     Indication: DIABETES MELLITUS
     Dosage: 20 MG, QD
     Route: 048
     Dates: start: 20141211
  4. LANTUS [Concomitant]
     Active Substance: INSULIN GLARGINE
     Indication: DIABETES MELLITUS
     Dosage: 20 U, QD
     Route: 058
  5. EXTAVIA [Suspect]
     Active Substance: INTERFERON BETA-1B
     Dosage: 0.125 MG, (0.5ML) QOD (WEEK 3 TO 4)
     Route: 058
  6. EXTAVIA [Suspect]
     Active Substance: INTERFERON BETA-1B
     Dosage: 0.25 MG, (1 ML) QOD (WEEKS 7 AND ABOVE)
     Route: 058
     Dates: start: 20141118
  7. ELAVIL [Concomitant]
     Active Substance: AMITRIPTYLINE HYDROCHLORIDE
     Indication: PAIN
     Dosage: 30 MG, QHS
     Route: 048
     Dates: start: 20140820
  8. TIZANIDINE (TIZANIDINE) [Concomitant]
     Active Substance: TIZANIDINE
     Dosage: 8 MG, BID
     Route: 048
     Dates: start: 20141113
  9. MODAFINIL. [Concomitant]
     Active Substance: MODAFINIL
     Indication: SOMNOLENCE
     Dosage: 400 MG, QD
     Route: 048
     Dates: start: 20140825
  10. MODAFINIL. [Concomitant]
     Active Substance: MODAFINIL
     Indication: FATIGUE
     Dosage: 200 MG, QD
     Route: 048
     Dates: start: 20140412
  11. GABAPENTIN. [Concomitant]
     Active Substance: GABAPENTIN
     Dosage: 300 MG, TID
     Route: 048
     Dates: start: 20141206
  12. AMITRIPTYLINE [Concomitant]
     Active Substance: AMITRIPTYLINE
     Indication: PAIN
     Dosage: 10 MG, QHS
     Route: 048
     Dates: start: 20140312
  13. SOLU-MEDROL [Concomitant]
     Active Substance: METHYLPREDNISOLONE SODIUM SUCCINATE
     Indication: MUSCULAR WEAKNESS
     Dosage: 1 G, QD
     Route: 042
  14. GABAPENTIN. [Concomitant]
     Active Substance: GABAPENTIN
     Indication: PAIN
     Dosage: 300 MG, TID
     Route: 048
     Dates: start: 20140412
  15. EXTAVIA [Suspect]
     Active Substance: INTERFERON BETA-1B
     Dosage: UNK
     Route: 058
     Dates: start: 20141124
  16. TIZANIDINE (TIZANIDINE) [Concomitant]
     Active Substance: TIZANIDINE
     Indication: MUSCLE SPASTICITY
     Dosage: 4 MG, BID
     Route: 048
     Dates: start: 20141112
  17. LANTUS [Concomitant]
     Active Substance: INSULIN GLARGINE
     Indication: BLOOD GLUCOSE INCREASED
     Dosage: 6 U, QD
     Route: 058
     Dates: start: 20141123
  18. EXTAVIA [Suspect]
     Active Substance: INTERFERON BETA-1B
     Indication: MULTIPLE SCLEROSIS RELAPSE
     Dosage: 0.0625 MG, (0.25 ML) QOD (WEEKS 1 TO 2)
     Route: 058
     Dates: start: 20141118

REACTIONS (8)
  - Spinal osteoarthritis [Not Recovered/Not Resolved]
  - Vessel puncture site haemorrhage [Recovering/Resolving]
  - Incorrect dose administered [Recovering/Resolving]
  - Sensory loss [Unknown]
  - Multiple sclerosis relapse [Recovering/Resolving]
  - Nerve compression [Recovering/Resolving]
  - Syringe issue [Unknown]
  - Asthenia [Unknown]

NARRATIVE: CASE EVENT DATE: 20141120
